FAERS Safety Report 23334764 (Version 2)
Quarter: 2024Q2

REPORT INFORMATION
  Report Type: Report from Study
  Country: CA (occurrence: CA)
  Receive Date: 20231224
  Receipt Date: 20240503
  Transmission Date: 20240716
  Serious: Yes (Other)
  Sender: FDA-Public Use
  Company Number: CA-Merck Healthcare KGaA-2023491401

PATIENT
  Sex: Female

DRUGS (4)
  1. REBIF [Suspect]
     Active Substance: INTERFERON BETA-1A
     Indication: Multiple sclerosis
     Dosage: TITRATION DOSE 20 PERCENT FOR TWO WEEKS
     Route: 058
     Dates: start: 20230829
  2. REBIF [Suspect]
     Active Substance: INTERFERON BETA-1A
     Dosage: 50 PERCENT FOR 2 WEEKS
     Route: 058
  3. REBIF [Suspect]
     Active Substance: INTERFERON BETA-1A
     Dosage: CUSTOM DOSING
     Route: 058
     Dates: start: 20240110
  4. REBIF [Suspect]
     Active Substance: INTERFERON BETA-1A
     Dosage: 100 PERCENT
     Route: 058
     Dates: start: 20240110

REACTIONS (11)
  - Delirium [Recovered/Resolved]
  - Hypothyroidism [Unknown]
  - Drug intolerance [Unknown]
  - Feeling hot [Recovered/Resolved]
  - Fatigue [Unknown]
  - Pyrexia [Recovered/Resolved]
  - Asthenia [Unknown]
  - Urinary incontinence [Recovered/Resolved]
  - Gait disturbance [Recovered/Resolved]
  - Adverse drug reaction [Unknown]
  - Off label use [Unknown]
